FAERS Safety Report 14072342 (Version 1)
Quarter: 2017Q4

REPORT INFORMATION
  Report Type: Spontaneous
  Country: US (occurrence: US)
  Receive Date: 20171010
  Receipt Date: 20171010
  Transmission Date: 20180321
  Serious: No
  Sender: FDA-Public Use
  Company Number: US-SA-2017SA182832

PATIENT
  Age: 49 Year
  Sex: Male

DRUGS (1)
  1. DUPIXENT [Suspect]
     Active Substance: DUPILUMAB
     Indication: DERMATITIS ATOPIC
     Dosage: DAY ONE
     Route: 058
     Dates: start: 20170915, end: 20170915

REACTIONS (4)
  - Pain [Unknown]
  - Rash erythematous [Unknown]
  - Skin warm [Unknown]
  - Dermatitis [Unknown]

NARRATIVE: CASE EVENT DATE: 20170916
